FAERS Safety Report 10196691 (Version 2)
Quarter: 2014Q2

REPORT INFORMATION
  Report Type: Spontaneous
  Country: US (occurrence: US)
  Receive Date: 20140527
  Receipt Date: 20140527
  Transmission Date: 20141212
  Serious: No
  Sender: FDA-Public Use
  Company Number: US-ASTRAZENECA-2014SE23123

PATIENT
  Age: 23868 Day
  Sex: Female
  Weight: 104.3 kg

DRUGS (6)
  1. SYMBICORT [Suspect]
     Indication: ASTHMA
     Dosage: 160/4.5 FOR ASTHMA 2 PUFFS AM AND PM
     Route: 055
     Dates: start: 20140219
  2. AMLODIPINE [Concomitant]
     Indication: BLOOD PRESSURE ABNORMAL
  3. SYMVASTATIN [Concomitant]
     Indication: BLOOD CHOLESTEROL ABNORMAL
  4. PHENOFIBRATE [Concomitant]
     Indication: BLOOD CHOLESTEROL ABNORMAL
  5. BYSTOLIC [Concomitant]
     Indication: BLOOD PRESSURE ABNORMAL
     Dosage: 5MG .5 TAB DAILY
  6. PROLIA [Concomitant]
     Indication: OSTEOPOROSIS
     Dosage: 2 INJECTIONS YEAR

REACTIONS (2)
  - Dysgeusia [Unknown]
  - Device misuse [Unknown]
